FAERS Safety Report 8321392-7 (Version None)
Quarter: 2012Q2

REPORT INFORMATION
  Report Type: 
  Country: None (occurrence: None)
  Receive Date: 20120430
  Receipt Date: 20120426
  Transmission Date: 20120825
  Serious: Yes (Hospitalization)
  Sender: FDA-Public Use
  Company Number: FR-ASTELLAS-2012EU003066

PATIENT
  Age: 36 Year
  Sex: Female

DRUGS (2)
  1. LOCOID [Suspect]
     Indication: PSORIASIS
     Dosage: 1 DF, OTHER
     Route: 061
     Dates: start: 19930101
  2. PROTOPIC [Suspect]
     Indication: PSORIASIS
     Dosage: 1 DF, OTHER
     Route: 061
     Dates: start: 20100101

REACTIONS (2)
  - NASAL SEPTUM PERFORATION [None]
  - OFF LABEL USE [None]
